FAERS Safety Report 5811338-5 (Version None)
Quarter: 2008Q3

REPORT INFORMATION
  Report Type: 
  Country: None (occurrence: None)
  Receive Date: 20080711
  Receipt Date: 20080703
  Transmission Date: 20090109
  Serious: Yes (Death, Other)
  Sender: FDA-Public Use
  Company Number: 2008-02387

PATIENT
  Age: 75 Year
  Sex: Male
  Weight: 67 kg

DRUGS (8)
  1. VELCADE [Suspect]
     Indication: MULTIPLE MYELOMA
     Dosage: 2.3 MG, INTRAVENOUS; 1.8 MG, INTRAVENOUS
     Route: 042
     Dates: start: 20071030, end: 20071104
  2. VELCADE [Suspect]
     Indication: MULTIPLE MYELOMA
     Dosage: 2.3 MG, INTRAVENOUS; 1.8 MG, INTRAVENOUS
     Route: 042
     Dates: start: 20071119, end: 20071122
  3. MAGTECT [Concomitant]
  4. PURSENNID (SENNA LEAF) [Concomitant]
  5. LENDORM [Concomitant]
  6. MECOBALAMIN (MECOBALAMIN) [Concomitant]
  7. NEUROTROPIN (ORGAN LYSATE, STANDARDIZED) [Concomitant]
  8. MAGNESIUM OXIDE (MAGNESIUM OXIDE) [Concomitant]

REACTIONS (2)
  - DISEASE PROGRESSION [None]
  - PLATELET COUNT DECREASED [None]
